FAERS Safety Report 10290298 (Version 1)
Quarter: 2014Q3

REPORT INFORMATION
  Report Type: Report from Study
  Country: US (occurrence: US)
  Receive Date: 20140710
  Receipt Date: 20140710
  Transmission Date: 20150326
  Serious: Yes (Other)
  Sender: FDA-Public Use
  Company Number: US-SA-2014SA087730

PATIENT
  Age: 63 Year
  Sex: Male

DRUGS (1)
  1. LANTUS [Suspect]
     Active Substance: INSULIN GLARGINE
     Indication: TYPE 2 DIABETES MELLITUS
     Dosage: DOSE: 40U AM, 20U PM
     Route: 065

REACTIONS (7)
  - Memory impairment [Unknown]
  - Intervertebral disc protrusion [Unknown]
  - Brain mass [Unknown]
  - Foot amputation [Unknown]
  - Renal failure [Unknown]
  - Off label use [Unknown]
  - Sleep talking [Unknown]

NARRATIVE: CASE EVENT DATE: 201110
